FAERS Safety Report 6504819-2 (Version None)
Quarter: 2009Q4

REPORT INFORMATION
  Report Type: 
  Country: None (occurrence: None)
  Receive Date: 20091218
  Receipt Date: 20091203
  Transmission Date: 20100525
  Serious: Yes (Other)
  Sender: FDA-Public Use
  Company Number: DE-MYLANLABS-2009S1020930

PATIENT
  Age: 39 Year
  Sex: Male

DRUGS (8)
  1. LISODURA [Suspect]
     Indication: INTENTIONAL OVERDOSE
     Route: 048
  2. DICLOFENAC [Suspect]
     Indication: INTENTIONAL OVERDOSE
     Route: 048
  3. LAXAGETTEN /00064401/ [Suspect]
     Indication: INTENTIONAL OVERDOSE
     Route: 048
  4. PARACETAMOL [Suspect]
     Indication: INTENTIONAL OVERDOSE
     Route: 048
  5. ENZYME AND ACID PREPARATIONS, COMBINATIONS [Suspect]
     Indication: INTENTIONAL OVERDOSE
     Route: 048
  6. RAMIPRIL [Suspect]
     Indication: INTENTIONAL OVERDOSE
     Route: 048
  7. PROPANE [Suspect]
     Indication: INTENTIONAL OVERDOSE
     Route: 055
  8. DROTAVERIN /00359201/ [Suspect]
     Indication: INTENTIONAL OVERDOSE
     Route: 048

REACTIONS (4)
  - INTENTIONAL OVERDOSE [None]
  - SOMNOLENCE [None]
  - SUICIDAL IDEATION [None]
  - SYSTOLIC HYPERTENSION [None]
